FAERS Safety Report 8559533-9 (Version None)
Quarter: 2012Q3

REPORT INFORMATION
  Report Type: 
  Country: None (occurrence: None)
  Receive Date: 20120802
  Receipt Date: 20120725
  Transmission Date: 20120928
  Serious: Yes (Hospitalization)
  Sender: FDA-Public Use
  Company Number: US-BAYER-2012-075969

PATIENT
  Age: 38 Year
  Sex: Female
  Weight: 199.55 kg

DRUGS (7)
  1. PHENTERMINE [Concomitant]
     Dosage: UNK
     Route: 048
     Dates: start: 20080723
  2. DYAZIDE [Concomitant]
     Dosage: 25 MG, DAILY
  3. DYAZIDE [Concomitant]
     Dosage: 37.5 MG, DAILY
     Route: 048
     Dates: start: 20080723
  4. ATENOLOL [Concomitant]
     Dosage: 50 MG, DAILY
     Route: 048
     Dates: start: 20080723
  5. PROZAC [Concomitant]
     Dosage: 20 MG, DAILY
     Route: 048
     Dates: start: 20080723
  6. HYDROCHLOROTHIAZIDE [Concomitant]
     Dosage: UNK
     Route: 048
     Dates: start: 20080723
  7. YAZ [Suspect]
     Dosage: UNK
     Dates: start: 20080723, end: 20080831

REACTIONS (2)
  - PULMONARY EMBOLISM [None]
  - DYSPNOEA [None]
